FAERS Safety Report 10087529 (Version 1)
Quarter: 2014Q2

REPORT INFORMATION
  Report Type: Spontaneous
  Country: US (occurrence: US)
  Receive Date: 20140418
  Receipt Date: 20140418
  Transmission Date: 20141212
  Serious: No
  Sender: FDA-Public Use
  Company Number: US-PURDUE-USA-2013-0108321

PATIENT
  Age: 55 Year
  Sex: Female

DRUGS (1)
  1. OXYCONTIN (NDA 22-272) [Suspect]
     Indication: SPINAL OSTEOARTHRITIS
     Dosage: 30 MG, BID
     Route: 048
     Dates: start: 201304

REACTIONS (6)
  - Back pain [Not Recovered/Not Resolved]
  - Spinal disorder [Not Recovered/Not Resolved]
  - Drug effect decreased [Not Recovered/Not Resolved]
  - Pain [Not Recovered/Not Resolved]
  - Neuralgia [Not Recovered/Not Resolved]
  - Pain in extremity [Not Recovered/Not Resolved]
